FAERS Safety Report 4751742-X (Version None)
Quarter: 2005Q3

REPORT INFORMATION
  Report Type: 
  Country: None (occurrence: None)
  Receive Date: 20050822
  Receipt Date: 20050818
  Transmission Date: 20060218
  Serious: No
  Sender: FDA-Public Use
  Company Number: S05-CAN-02842-01

PATIENT
  Age: 39 Year
  Sex: Female

DRUGS (7)
  1. CITALOPRAM HYDROBROMIDE [Suspect]
     Dosage: 40 MG QD PO
     Route: 048
  2. CLONAZEPAM [Concomitant]
  3. COLACE (DOCUSATE SODIUM) [Concomitant]
  4. LOSEC (OMEPRAZOLE) [Concomitant]
  5. MOBIC [Concomitant]
  6. SEROQUEL [Concomitant]
  7. TOPAMAX [Concomitant]

REACTIONS (7)
  - ANXIETY [None]
  - CHILLS [None]
  - CONDITION AGGRAVATED [None]
  - DRUG WITHDRAWAL SYNDROME [None]
  - HYPERHIDROSIS [None]
  - PALPITATIONS [None]
  - PANIC REACTION [None]
